FAERS Safety Report 15474465 (Version 3)
Quarter: 2018Q4

REPORT INFORMATION
  Report Type: Spontaneous
  Country: US (occurrence: US)
  Receive Date: 20181008
  Receipt Date: 20181206
  Transmission Date: 20190205
  Serious: No
  Sender: FDA-Public Use
  Company Number: US-SUNOVION-2018SUN003855

PATIENT
  Sex: Female

DRUGS (1)
  1. LATUDA [Suspect]
     Active Substance: LURASIDONE HYDROCHLORIDE
     Dosage: UNKNOWN
     Route: 048

REACTIONS (12)
  - Irritability [Unknown]
  - Hyperhidrosis [Unknown]
  - Feeling hot [Unknown]
  - Paraesthesia [Unknown]
  - Premature menopause [Unknown]
  - Eye disorder [Unknown]
  - Weight loss poor [Unknown]
  - Menstruation delayed [Unknown]
  - Hot flush [Unknown]
  - Faecal volume increased [Unknown]
  - Loss of personal independence in daily activities [Unknown]
  - Blood glucose increased [Unknown]
